FAERS Safety Report 16742364 (Version 2)
Quarter: 2019Q4

REPORT INFORMATION
  Report Type: Spontaneous
  Country: US (occurrence: US)
  Receive Date: 20190826
  Receipt Date: 20191001
  Transmission Date: 20200122
  Serious: No
  Sender: FDA-Public Use
  Company Number: US-JNJFOC-20190826913

PATIENT
  Age: 46 Year
  Sex: Female
  Weight: 158.9 kg

DRUGS (9)
  1. GABAPENTIN. [Concomitant]
     Active Substance: GABAPENTIN
     Dosage: 3 TABLETS
     Route: 048
  2. NEMBUTAL SODIUM [Concomitant]
     Active Substance: PENTOBARBITAL SODIUM
     Route: 065
  3. VENLAFAXINE                        /01233802/ [Concomitant]
     Active Substance: VENLAFAXINE HYDROCHLORIDE
     Dosage: 225MG/150MG/ AND 225MG/75MG/
     Route: 065
  4. ATORVASTATIN [Concomitant]
     Active Substance: ATORVASTATIN
     Route: 065
  5. XANAX [Concomitant]
     Active Substance: ALPRAZOLAM
     Route: 065
  6. SIMPONI [Suspect]
     Active Substance: GOLIMUMAB
     Indication: RHEUMATOID ARTHRITIS
     Route: 058
     Dates: start: 201902
  7. AMBIEN [Concomitant]
     Active Substance: ZOLPIDEM TARTRATE
     Route: 065
  8. FOLIC ACID. [Concomitant]
     Active Substance: FOLIC ACID
     Route: 065
  9. ARMOUR THYROID [Concomitant]
     Active Substance: THYROID, PORCINE
     Route: 065

REACTIONS (2)
  - Drug delivery system malfunction [Unknown]
  - Product dose omission [Unknown]

NARRATIVE: CASE EVENT DATE: 20190821
